FAERS Safety Report 9548815 (Version 1)
Quarter: 2013Q2

REPORT INFORMATION
  Report Type: Spontaneous
  Country: US (occurrence: None)
  Receive Date: 20130627
  Receipt Date: 20130627
  Transmission Date: 20140414
  Serious: Yes (Other)
  Sender: FDA-Public Use
  Company Number: 1000043638

PATIENT
  Age: 48 Year
  Sex: Female

DRUGS (4)
  1. LINZESS [Suspect]
     Dosage: 290MG (290 MG, 1 IN 1 D), ORAL
     Route: 048
     Dates: start: 201302
  2. GABAPENTIN (GABAPENTIN) (GABAPENTIN) [Concomitant]
  3. TRAZODONE (TRAZODONE) (TRAZODONE) [Concomitant]
  4. CLONAZEPAM (CLONAZEPAM) (CLONAZEPAM) [Concomitant]

REACTIONS (3)
  - Diarrhoea [None]
  - Abdominal pain [None]
  - Back pain [None]
